FAERS Safety Report 6993267-7 (Version None)
Quarter: 2010Q3

REPORT INFORMATION
  Report Type: 
  Country: None (occurrence: None)
  Receive Date: 20100917
  Receipt Date: 20100617
  Transmission Date: 20110219
  Serious: Yes (Other)
  Sender: FDA-Public Use
  Company Number: US-ASTRAZENECA-2010SE28386

PATIENT
  Age: 42 Year
  Sex: Male
  Weight: 97.1 kg

DRUGS (7)
  1. SEROQUEL [Suspect]
     Indication: BIPOLAR DISORDER
     Route: 048
     Dates: start: 20090101
  2. PAXIL [Concomitant]
  3. ELAVIL [Concomitant]
  4. DIOVAN [Concomitant]
  5. ZOCOR [Concomitant]
  6. PREVACID [Concomitant]
  7. KLONIPINE [Concomitant]

REACTIONS (5)
  - CHOKING [None]
  - INSOMNIA [None]
  - MALAISE [None]
  - SUICIDAL IDEATION [None]
  - WEIGHT INCREASED [None]
